FAERS Safety Report 8797817 (Version 5)
Quarter: 2014Q2

REPORT INFORMATION
  Report Type: Spontaneous
  Country: US (occurrence: US)
  Receive Date: 20120920
  Receipt Date: 20131018
  Transmission Date: 20141212
  Serious: Yes (Hospitalization, Other)
  Sender: FDA-Public Use
  Company Number: US-PFIZER INC-2012230607

PATIENT
  Age: 42 Year
  Sex: Female
  Weight: 72.56 kg

DRUGS (12)
  1. DILANTIN-125 [Suspect]
     Indication: HALLUCINATION
     Dosage: 300 MG, (THREE PHENYTOIN, 100 MG)
     Dates: start: 20120901, end: 20120914
  2. DILANTIN-125 [Suspect]
     Indication: CONVULSION
     Dosage: 300 MG, 1X/DAY
     Dates: end: 20121009
  3. DILANTIN-125 [Suspect]
     Indication: FEELING ABNORMAL
  4. DILANTIN-125 [Suspect]
     Indication: DYSPNOEA
  5. DILANTIN-125 [Suspect]
     Indication: TREMOR
  6. ACETYLSALICYLIC ACID [Suspect]
     Indication: HEADACHE
     Dosage: 100 MG, (TWO ASPIRIN, 50 MG), DAILY
     Dates: start: 201209
  7. LIBRIUM [Suspect]
     Indication: TREMOR
     Dosage: 50 MG, 3X/DAY
     Dates: start: 201209
  8. LIBRIUM [Suspect]
     Indication: SPEECH DISORDER
  9. LIBRIUM [Suspect]
     Indication: DISTURBANCE IN ATTENTION
  10. LIBRIUM [Suspect]
     Indication: THINKING ABNORMAL
  11. OXYGEN [Concomitant]
     Dosage: UNK
     Dates: start: 201209
  12. ASPIRIN [Concomitant]
     Dosage: UNK

REACTIONS (12)
  - Convulsion [Unknown]
  - Loss of consciousness [Unknown]
  - Fall [Unknown]
  - Head injury [Unknown]
  - Hallucination [Unknown]
  - Impaired work ability [Unknown]
  - Dysstasia [Unknown]
  - Anticonvulsant drug level abnormal [Unknown]
  - Feeling abnormal [Unknown]
  - Tremor [Unknown]
  - Dyspnoea [Unknown]
  - Drug ineffective [Unknown]
